FAERS Safety Report 4325249-8 (Version None)
Quarter: 2004Q1

REPORT INFORMATION
  Report Type: 
  Country: None (occurrence: None)
  Receive Date: 20040324
  Receipt Date: 20040305
  Transmission Date: 20041129
  Serious: Yes (Death, Hospitalization)
  Sender: FDA-Public Use
  Company Number: 430001M04FRA

PATIENT
  Age: 66 Year
  Sex: Male

DRUGS (4)
  1. NOVANTRONE [Suspect]
     Indication: B-CELL LYMPHOMA
     Dates: start: 19940517, end: 19940915
  2. IFOSFAMIDE [Suspect]
     Indication: B-CELL LYMPHOMA
     Dates: start: 19940401, end: 19941130
  3. MOLGRAMOSTIM [Suspect]
     Dates: start: 19940401, end: 19941130
  4. ETOPOSIDE [Suspect]
     Indication: B-CELL LYMPHOMA
     Dates: start: 19940401, end: 19941130

REACTIONS (4)
  - ACUTE MYELOID LEUKAEMIA [None]
  - CARDIOTOXICITY [None]
  - CEREBRAL HAEMORRHAGE [None]
  - DISSEMINATED INTRAVASCULAR COAGULATION [None]
